FAERS Safety Report 4751237-3 (Version None)
Quarter: 2005Q3

REPORT INFORMATION
  Report Type: 
  Country: None (occurrence: None)
  Receive Date: 20050824
  Receipt Date: 20050824
  Transmission Date: 20060218
  Serious: Yes (Other)
  Sender: FDA-Public Use
  Company Number: None

PATIENT
  Age: 77 Year
  Sex: Male
  Weight: 76.6579 kg

DRUGS (1)
  1. TIMOLOL MALEATE [Suspect]
     Indication: GLAUCOMA
     Dosage: 1 DROP   HS   OPHTHALMIC
     Route: 047
     Dates: start: 20050811, end: 20050823

REACTIONS (5)
  - DISCOMFORT [None]
  - DRUG EFFECT DECREASED [None]
  - EYE DISCHARGE [None]
  - EYE PAIN [None]
  - VISION BLURRED [None]
